FAERS Safety Report 4401182-8 (Version None)
Quarter: 2004Q3

REPORT INFORMATION
  Report Type: 
  Country: None (occurrence: None)
  Receive Date: 20040907
  Receipt Date: 20031204
  Transmission Date: 20050211
  Serious: No
  Sender: FDA-Public Use
  Company Number: US-BRISTOL-MYERS SQUIBB COMPANY-12450417

PATIENT
  Age: 84 Year
  Sex: Female
  Weight: 44 kg

DRUGS (6)
  1. COUMADIN [Suspect]
     Indication: ATRIAL FIBRILLATION
     Dosage: TAKES 5MG, 1 TAB QD FOR 6 DAYS + 1/2 TAB ON DAY 7.
     Route: 048
     Dates: start: 20030501
  2. FUROSEMIDE [Concomitant]
  3. DIOVAN [Concomitant]
  4. TOPROL-XL [Concomitant]
  5. DIGITEK [Concomitant]
  6. FOSAMAX [Concomitant]

REACTIONS (2)
  - INTERNATIONAL NORMALISED RATIO DECREASED [None]
  - RASH PRURITIC [None]
